FAERS Safety Report 18664052 (Version 1)
Quarter: 2020Q4

REPORT INFORMATION
  Report Type: Spontaneous
  Country: US (occurrence: US)
  Receive Date: 20201225
  Receipt Date: 20201225
  Transmission Date: 20210114
  Serious: Yes (Other)
  Sender: FDA-Public Use
  Company Number: US-SA-2020SA362531

PATIENT

DRUGS (2)
  1. DIPHENHYDRAMINE. [Suspect]
     Active Substance: DIPHENHYDRAMINE
  2. AMANTADINE. [Suspect]
     Active Substance: AMANTADINE HYDROCHLORIDE

REACTIONS (3)
  - Delirium [Unknown]
  - Acute psychosis [Unknown]
  - Hallucination, visual [Unknown]
